APPROVED DRUG PRODUCT: NAPROXEN AND ESOMEPRAZOLE MAGNESIUM
Active Ingredient: ESOMEPRAZOLE MAGNESIUM; NAPROXEN
Strength: EQ 20MG BASE;375MG
Dosage Form/Route: TABLET, DELAYED RELEASE;ORAL
Application: A213699 | Product #001 | TE Code: AB
Applicant: AJANTA PHARMA LTD
Approved: Oct 6, 2022 | RLD: No | RS: No | Type: RX